FAERS Safety Report 7572359-8 (Version None)
Quarter: 2011Q2

REPORT INFORMATION
  Report Type: 
  Country: None (occurrence: None)
  Receive Date: 20110624
  Receipt Date: 20110620
  Transmission Date: 20111010
  Serious: Yes (Disabling)
  Sender: FDA-Public Use
  Company Number: NL-ABBOTT-11P-114-0733924-00

PATIENT
  Sex: Male
  Weight: 80 kg

DRUGS (15)
  1. BECLOMETASON MESALAZINE CLYSTER [Concomitant]
     Indication: CROHN'S DISEASE
     Dosage: DAILY DOSE: 1- 0.03/40MG/G 60GR
     Route: 054
  2. ESOMEPRAZOLE MAGNESIUM [Concomitant]
     Indication: GASTRIC DISORDER
     Route: 048
  3. ESOMEPRAZOLE MAGNESIUM [Concomitant]
     Indication: PROPHYLAXIS
  4. PREDNISOLONE [Concomitant]
     Route: 048
     Dates: start: 20110101
  5. MERCAPTOPURINE [Concomitant]
     Indication: CROHN'S DISEASE
     Route: 048
  6. HUMIRA [Suspect]
     Route: 058
     Dates: start: 20100801, end: 20101101
  7. LOPERAMIDE [Concomitant]
     Indication: PRODUCT USED FOR UNKNOWN INDICATION
     Route: 048
  8. MESALAMINE [Concomitant]
     Indication: CROHN'S DISEASE
     Route: 048
  9. RISEDRONINIC ACID TABLET [Concomitant]
     Indication: OSTEOPOROSIS PROPHYLAXIS
  10. MESALAZINE CLYSTER 66.7MG/G FLACON 60G [Concomitant]
     Indication: CROHN'S DISEASE
     Route: 054
     Dates: start: 20110601
  11. PREDNISOLONE [Concomitant]
     Indication: CROHN'S DISEASE
     Route: 048
     Dates: end: 20101001
  12. FERROSULFATE TABLET SR [Concomitant]
     Indication: ANAEMIA PROPHYLAXIS
     Route: 048
  13. PREDNISOLONE [Concomitant]
     Route: 048
     Dates: start: 20101101, end: 20101201
  14. HUMIRA [Suspect]
     Indication: CROHN'S DISEASE
     Route: 058
     Dates: start: 20100329, end: 20100801
  15. CALCIUM CARBONATE W/COLECALCIFEROL [Concomitant]
     Indication: OSTEOPOROSIS PROPHYLAXIS
     Dosage: DAILY DOSE: 1.25G/400IE
     Route: 048

REACTIONS (4)
  - GRIP STRENGTH DECREASED [None]
  - MUSCULOSKELETAL PAIN [None]
  - JOINT RANGE OF MOTION DECREASED [None]
  - JOINT CONTRACTURE [None]
